FAERS Safety Report 8318525-5 (Version None)
Quarter: 2012Q2

REPORT INFORMATION
  Report Type: 
  Country: None (occurrence: None)
  Receive Date: 20120427
  Receipt Date: 20120419
  Transmission Date: 20120825
  Serious: Yes (Other)
  Sender: FDA-Public Use
  Company Number: ES-GLAXOSMITHKLINE-B0796215A

PATIENT
  Age: 70 Year
  Sex: Male

DRUGS (1)
  1. PLUSVENT [Suspect]
     Indication: RESPIRATORY DISORDER
     Dosage: 1PUFF PER DAY
     Route: 055

REACTIONS (1)
  - CHOKING [None]
